FAERS Safety Report 5558180-0 (Version None)
Quarter: 2007Q4

REPORT INFORMATION
  Report Type: 
  Country: None (occurrence: None)
  Receive Date: 20071214
  Receipt Date: 20071203
  Transmission Date: 20080405
  Serious: Yes (Other)
  Sender: FDA-Public Use
  Company Number: US-PFIZER INC-2007101706

PATIENT
  Age: 85 Year
  Sex: Female

DRUGS (3)
  1. GABAPENTIN [Suspect]
     Indication: NEURALGIA
  2. HALOPERIDOL [Concomitant]
  3. LANSOPRAZOLE [Concomitant]

REACTIONS (4)
  - ABDOMINAL PAIN UPPER [None]
  - PSYCHOMOTOR HYPERACTIVITY [None]
  - RENAL FAILURE ACUTE [None]
  - RHABDOMYOLYSIS [None]
